FAERS Safety Report 8117272-2 (Version None)
Quarter: 2012Q1

REPORT INFORMATION
  Report Type: 
  Country: None (occurrence: None)
  Receive Date: 20120206
  Receipt Date: 20120130
  Transmission Date: 20120608
  Serious: Yes (Hospitalization)
  Sender: FDA-Public Use
  Company Number: US-AMGEN-USASP2011039331

PATIENT
  Age: 74 Year
  Sex: Male
  Weight: 94.331 kg

DRUGS (14)
  1. VITAMIN B12                        /00056201/ [Concomitant]
     Dosage: UNK UNK, QD
     Route: 030
  2. PNEUMOCOCCAL POLYSACCHARIDE VACCINE [Concomitant]
     Dates: start: 20110901, end: 20110901
  3. XGEVA [Suspect]
     Indication: METASTASES TO BONE
     Dosage: 120 MG, Q4WK
     Dates: start: 20110531, end: 20110601
  4. AMLODIPINE [Concomitant]
     Dosage: 5 MG, QD
  5. FIRMAGON                           /01764801/ [Concomitant]
     Dosage: 80 MG, Q4WK
     Route: 058
  6. OMEPRAZOLE [Concomitant]
     Dosage: 40 MG, QD
  7. LUPRON [Concomitant]
     Dosage: 22.5 MG, UNK
     Dates: start: 20120111
  8. ACETAMINOPHEN [Concomitant]
     Dosage: 500 MG, Q4H
     Route: 048
  9. FEROSOL [Concomitant]
     Dosage: 325 MG, BID
     Route: 048
  10. LOSARTAN POTASSIUM [Concomitant]
     Dosage: 25 MG, QD
  11. METOPROLOL SUCCINATE [Concomitant]
     Dosage: 100 MG, QD
     Route: 048
  12. AMLODIPINE [Concomitant]
     Dosage: 2.5 MG, QD
     Route: 048
  13. LISINOPRIL [Concomitant]
     Dosage: 20 MG, QD
     Route: 048
     Dates: end: 20111031
  14. CYANOCOBALAMIN [Concomitant]
     Dosage: 100 MUG, QD

REACTIONS (5)
  - COUGH [None]
  - RHINORRHOEA [None]
  - VITAMIN D DECREASED [None]
  - HYPOCALCAEMIA [None]
  - BLOOD PRESSURE INCREASED [None]
